FAERS Safety Report 16353121 (Version 1)
Quarter: 2019Q2

REPORT INFORMATION
  Report Type: Spontaneous
  Country: US (occurrence: US)
  Receive Date: 20190524
  Receipt Date: 20190524
  Transmission Date: 20190711
  Serious: No
  Sender: FDA-Public Use
  Company Number: US-PFIZER INC-2019219628

PATIENT
  Age: 61 Year
  Sex: Female
  Weight: 71.2 kg

DRUGS (1)
  1. LIOTHYRONINE SODIUM. [Suspect]
     Active Substance: LIOTHYRONINE SODIUM
     Indication: THYROID DISORDER
     Dosage: 200 UG, DAILY (25 MCG, 1 CAPSULE BY MOUTH EVERY 2 HOURS, 8 TOTAL DAILY)
     Route: 048
     Dates: start: 2001

REACTIONS (7)
  - Condition aggravated [Unknown]
  - Hypertension [Not Recovered/Not Resolved]
  - Prescribed overdose [Unknown]
  - Weight increased [Not Recovered/Not Resolved]
  - Alopecia [Not Recovered/Not Resolved]
  - Thyroid disorder [Unknown]
  - Blood cholesterol increased [Not Recovered/Not Resolved]

NARRATIVE: CASE EVENT DATE: 201904
